FAERS Safety Report 13023560 (Version 3)
Quarter: 2017Q1

REPORT INFORMATION
  Report Type: Spontaneous
  Country: DE (occurrence: DE)
  Receive Date: 20161213
  Receipt Date: 20170126
  Transmission Date: 20170428
  Serious: Yes (Other)
  Sender: FDA-Public Use
  Company Number: DE-PFIZER INC-2016571986

PATIENT
  Age: 74 Year
  Sex: Female
  Weight: 60 kg

DRUGS (2)
  1. TAVOR EXPIDET [Suspect]
     Active Substance: LORAZEPAM
     Indication: SLEEP DISORDER
  2. TAVOR EXPIDET [Suspect]
     Active Substance: LORAZEPAM
     Indication: AGITATION
     Dosage: UNK, 1X/DAY
     Route: 048

REACTIONS (3)
  - Nausea [Recovered/Resolved]
  - Angina pectoris [Recovered/Resolved]
  - Abdominal pain [Recovered/Resolved]

NARRATIVE: CASE EVENT DATE: 20161126
